FAERS Safety Report 15997978 (Version 8)
Quarter: 2019Q3

REPORT INFORMATION
  Report Type: Report from Study
  Country: US (occurrence: US)
  Receive Date: 20190222
  Receipt Date: 20190731
  Transmission Date: 20191004
  Serious: Yes (Hospitalization)
  Sender: FDA-Public Use
  Company Number: US-ACTELION-A-US2019-186459

PATIENT
  Age: 73 Year
  Sex: Female

DRUGS (22)
  1. OPSUMIT [Suspect]
     Active Substance: MACITENTAN
     Indication: PULMONARY ARTERIAL HYPERTENSION
     Dosage: 10 MG, QD
     Route: 048
     Dates: start: 20190306, end: 20190612
  2. NEURONTIN [Concomitant]
     Active Substance: GABAPENTIN
     Dosage: UNK
     Dates: start: 20190327
  3. XOPENEX [Concomitant]
     Active Substance: LEVALBUTEROL HYDROCHLORIDE
     Dosage: UNK
     Dates: start: 20190327
  4. OPSUMIT [Suspect]
     Active Substance: MACITENTAN
     Dosage: UNK
     Route: 048
     Dates: start: 20190212, end: 20190227
  5. ADCIRCA [Concomitant]
     Active Substance: TADALAFIL
     Dosage: UNK
     Dates: start: 20190327
  6. LASIX [Concomitant]
     Active Substance: FUROSEMIDE
     Dosage: TABLET
     Route: 048
     Dates: start: 20190212, end: 20190214
  7. LASIX [Concomitant]
     Active Substance: FUROSEMIDE
     Dosage: TABLET
     Route: 048
     Dates: start: 20190215
  8. DURICEF [Concomitant]
     Active Substance: CEFADROXIL
  9. LASIX [Concomitant]
     Active Substance: FUROSEMIDE
     Dosage: UNK
     Route: 042
     Dates: start: 20190208
  10. PROSOM [Concomitant]
     Active Substance: ESTAZOLAM
     Dosage: UNK
     Dates: start: 20190327
  11. OPSUMIT [Suspect]
     Active Substance: MACITENTAN
     Dosage: UNK
     Route: 048
     Dates: start: 20190117, end: 20190209
  12. FERROUS SULFATE. [Concomitant]
     Active Substance: FERROUS SULFATE
     Dosage: UNK
  13. SYNTHROID [Concomitant]
     Active Substance: LEVOTHYROXINE SODIUM
     Dosage: UNK
     Dates: start: 20190327
  14. OPSUMIT [Suspect]
     Active Substance: MACITENTAN
     Dosage: UNK
     Route: 048
     Dates: start: 20190306
  15. AUGMENTIN [Concomitant]
     Active Substance: AMOXICILLIN\CLAVULANATE POTASSIUM
     Dosage: UNK
     Dates: start: 20190327
  16. OPSUMIT [Suspect]
     Active Substance: MACITENTAN
     Dosage: UNK
     Route: 048
     Dates: start: 20190209, end: 20190211
  17. BENICAR [Concomitant]
     Active Substance: OLMESARTAN MEDOXOMIL
     Dosage: UNK
     Dates: start: 20190327
  18. HUMALOG [Concomitant]
     Active Substance: INSULIN LISPRO
     Dosage: UNK
     Dates: start: 20190327
  19. NORCO [Concomitant]
     Active Substance: ACETAMINOPHEN\HYDROCODONE BITARTRATE
     Dosage: UNK
     Dates: start: 20190327
  20. ADCIRCA [Concomitant]
     Active Substance: TADALAFIL
     Dosage: 40 MG, QD
     Dates: start: 2018
  21. BETAPACE [Concomitant]
     Active Substance: SOTALOL HYDROCHLORIDE
     Dosage: UNK
     Dates: start: 20190327
  22. JANTOVEN [Concomitant]
     Active Substance: WARFARIN SODIUM
     Dosage: UNK
     Dates: start: 20190327

REACTIONS (25)
  - Acute pulmonary oedema [Recovering/Resolving]
  - Fluid retention [Unknown]
  - Electrolyte imbalance [Not Recovered/Not Resolved]
  - Pulmonary hypertension [Unknown]
  - Carbon dioxide increased [Unknown]
  - Fluid overload [Recovered/Resolved with Sequelae]
  - Oedema peripheral [Unknown]
  - Hypothyroidism [Unknown]
  - Respiratory failure [Recovered/Resolved with Sequelae]
  - Dyspnoea exertional [Recovered/Resolved with Sequelae]
  - Left ventricular failure [Unknown]
  - Depression [Unknown]
  - Anxiety [Unknown]
  - Blood creatinine increased [Recovered/Resolved]
  - Chronic kidney disease [Recovering/Resolving]
  - Insomnia [Unknown]
  - Anaemia [Unknown]
  - Hypotension [Recovering/Resolving]
  - Weight increased [Recovered/Resolved with Sequelae]
  - Cardiac failure congestive [Recovering/Resolving]
  - Dyspnoea [Unknown]
  - Treatment noncompliance [Unknown]
  - Type 2 diabetes mellitus [Unknown]
  - Oedema [Recovered/Resolved]
  - Swelling [Unknown]

NARRATIVE: CASE EVENT DATE: 201901
